FAERS Safety Report 9804567 (Version 1)
Quarter: 2014Q1

REPORT INFORMATION
  Report Type: Other
  Country: GB (occurrence: GB)
  Receive Date: 20140108
  Receipt Date: 20140108
  Transmission Date: 20141002
  Serious: Yes (Hospitalization)
  Sender: FDA-Public Use
  Company Number: GB-PERRIGO-14GB000049

PATIENT
  Age: 60 Year
  Sex: Female

DRUGS (4)
  1. EXTRA POWER PAIN RELIEVER 12063/0009 [Suspect]
     Indication: HEADACHE
     Dosage: 8 DF, QD
     Route: 048
     Dates: end: 20131227
  2. EXTRA POWER PAIN RELIEVER 12063/0009 [Suspect]
     Indication: MIGRAINE
  3. DULOXETINE [Concomitant]
     Indication: PRODUCT USED FOR UNKNOWN INDICATION
     Dosage: UNK
     Route: 065
  4. NARATRIPTAN [Concomitant]
     Indication: PRODUCT USED FOR UNKNOWN INDICATION
     Dosage: UNK
     Route: 065

REACTIONS (5)
  - Haematemesis [Recovering/Resolving]
  - Abdominal pain upper [Recovering/Resolving]
  - Gastrointestinal haemorrhage [Recovering/Resolving]
  - Presyncope [Recovering/Resolving]
  - Gastritis erosive [Unknown]
